FAERS Safety Report 5016955-0 (Version None)
Quarter: 2006Q2

REPORT INFORMATION
  Report Type: 
  Country: None (occurrence: None)
  Receive Date: 20060525
  Receipt Date: 20060515
  Transmission Date: 20061013
  Serious: Yes (Other)
  Sender: FDA-Public Use
  Company Number: 2005116061

PATIENT
  Age: 27 Year
  Sex: Female
  Weight: 100.6985 kg

DRUGS (8)
  1. ROLAIDS SOFT CHEWS VANILLA CREME (CALCIUM CARBONATE) [Suspect]
     Indication: DYSPEPSIA
     Dosage: 2 - 3 SOFT CHEWS DAILY, ORAL
     Route: 048
     Dates: start: 20050701, end: 20060201
  2. SERTRALINE HCL [Concomitant]
  3. TOPIRAMATE [Concomitant]
  4. INSULIN HUMAN (INSULIN HUMAN) [Concomitant]
  5. INSULIN GLARGINE (INSULIN GLARGINE) [Concomitant]
  6. GLIPIZIDE/METFORMIN HYDROCHLORIDE (GLIPIZIDE, METFORMIN HYDROCHLORIDE) [Concomitant]
  7. PRENATAL (ASCORBIC ACID, CALCIUM GLUCONATE, CUPRIC CARBONATE, BASIC, C [Concomitant]
  8. NOVOLIN 20/80 (INSULIN HUMAN, INSULIN ISOPHANE, HUMAN BIOSYNTHETIC) [Concomitant]

REACTIONS (3)
  - DRUG EXPOSURE DURING PREGNANCY [None]
  - PREGNANCY INDUCED HYPERTENSION [None]
  - PREMATURE LABOUR [None]
